FAERS Safety Report 20776353 (Version 2)
Quarter: 2022Q2

REPORT INFORMATION
  Report Type: Spontaneous
  Country: US (occurrence: US)
  Receive Date: 20220502
  Receipt Date: 20220513
  Transmission Date: 20220720
  Serious: No
  Sender: FDA-Public Use
  Company Number: US-SANOFI-01081119

PATIENT
  Sex: Male

DRUGS (1)
  1. DUPIXENT [Suspect]
     Active Substance: DUPILUMAB
     Indication: Eczema
     Dosage: 300 MG, QOW

REACTIONS (5)
  - Burning sensation [Unknown]
  - Dry skin [Unknown]
  - Erythema [Unknown]
  - Periorbital swelling [Unknown]
  - Therapeutic product effect decreased [Unknown]
